FAERS Safety Report 6821452-3 (Version None)
Quarter: 2010Q3

REPORT INFORMATION
  Report Type: 
  Country: None (occurrence: None)
  Receive Date: 20100707
  Receipt Date: 20080828
  Transmission Date: 20110219
  Serious: Yes (Other)
  Sender: FDA-Public Use
  Company Number: US-PFIZER INC-2008072468

PATIENT
  Sex: Male
  Weight: 99.8 kg

DRUGS (9)
  1. SERTRALINE HCL [Suspect]
     Indication: DEPRESSION
     Route: 048
     Dates: start: 20080423
  2. BUPROPION HCL [Concomitant]
  3. TAMSULOSIN HCL [Concomitant]
  4. VALSARTAN [Concomitant]
  5. VYTORIN [Concomitant]
  6. MULTI-VITAMINS [Concomitant]
  7. ACETYLSALICYLIC ACID [Concomitant]
  8. NIACIN [Concomitant]
  9. LORAZEPAM [Concomitant]

REACTIONS (2)
  - DRUG INEFFECTIVE [None]
  - ORTHOSTATIC HYPOTENSION [None]
